FAERS Safety Report 7830496-4 (Version None)
Quarter: 2011Q4

REPORT INFORMATION
  Report Type: 
  Country: None (occurrence: None)
  Receive Date: 20111021
  Receipt Date: 20111018
  Transmission Date: 20120403
  Serious: Yes (Hospitalization, Other)
  Sender: FDA-Public Use
  Company Number: US-PFIZER INC-2011250898

PATIENT
  Sex: Male
  Weight: 107.3 kg

DRUGS (4)
  1. PRISTIQ [Suspect]
     Indication: DEPRESSION
  2. GABAPENTIN [Concomitant]
     Dosage: 900 MG, 1X/DAY
  3. PRISTIQ [Suspect]
     Indication: ANXIETY
     Dosage: 50 MG, 1X/DAY
     Route: 048
     Dates: start: 20100101
  4. NABUMETONE [Concomitant]
     Dosage: UNK

REACTIONS (13)
  - HEADACHE [None]
  - HYPOKALAEMIA [None]
  - PARAESTHESIA [None]
  - NAUSEA [None]
  - IRRITABILITY [None]
  - LOSS OF CONSCIOUSNESS [None]
  - IMPAIRED WORK ABILITY [None]
  - WEIGHT INCREASED [None]
  - APHASIA [None]
  - DIZZINESS [None]
  - INSOMNIA [None]
  - LIMB DISCOMFORT [None]
  - FATIGUE [None]
